FAERS Safety Report 8028577 (Version 8)
Quarter: 2013Q2

REPORT INFORMATION
  Report Type: Spontaneous
  Country: US (occurrence: US)
  Receive Date: 20110711
  Receipt Date: 20130412
  Transmission Date: 20140414
  Serious: Yes (Other)
  Sender: FDA-Public Use
  Company Number: US-ROCHE-787504

PATIENT
  Age: 14 Year
  Sex: Male

DRUGS (1)
  1. ACCUTANE [Suspect]
     Indication: PRODUCT USED FOR UNKNOWN INDICATION
     Route: 065
     Dates: start: 19891118, end: 19920601

REACTIONS (5)
  - Diverticulitis [Unknown]
  - Pelvic abscess [Unknown]
  - Anxiety [Unknown]
  - Injury [Unknown]
  - Lip dry [Unknown]
